FAERS Safety Report 6170365-1 (Version None)
Quarter: 2009Q2

REPORT INFORMATION
  Report Type: 
  Country: None (occurrence: None)
  Receive Date: 20090428
  Receipt Date: 20090415
  Transmission Date: 20091009
  Serious: Yes (Hospitalization)
  Sender: FDA-Public Use
  Company Number: PL-MERCK-0904POL00007

PATIENT
  Age: 42 Month
  Sex: Female

DRUGS (2)
  1. SINGULAIR [Suspect]
     Indication: ASTHMA
     Route: 048
     Dates: start: 20071001, end: 20080701
  2. PULMICORT-100 [Concomitant]
     Indication: ASTHMA
     Route: 065

REACTIONS (5)
  - GENERAL SYMPTOM [None]
  - HYPOTONIA [None]
  - LOSS OF CONSCIOUSNESS [None]
  - SYNCOPE [None]
  - VERTIGO [None]
